FAERS Safety Report 24438456 (Version 1)
Quarter: 2024Q4

REPORT INFORMATION
  Report Type: Spontaneous
  Country: US (occurrence: US)
  Receive Date: 20241015
  Receipt Date: 20241015
  Transmission Date: 20250115
  Serious: Yes (Hospitalization)
  Sender: PFIZER
  Company Number: US-PFIZER INC-202400275544

PATIENT
  Age: 77 Year
  Sex: Female
  Weight: 86.18 kg

DRUGS (3)
  1. TIKOSYN [Suspect]
     Active Substance: DOFETILIDE
     Indication: Atrial fibrillation
     Dosage: 250 UG
  2. TIKOSYN [Suspect]
     Active Substance: DOFETILIDE
     Dosage: ONE IN THE MORNING AND ONE AT NIGHT
     Dates: start: 202307
  3. TIKOSYN [Suspect]
     Active Substance: DOFETILIDE
     Dosage: 250 MG

REACTIONS (2)
  - Drug ineffective [Recovered/Resolved]
  - Product prescribing error [Unknown]
